FAERS Safety Report 24390163 (Version 1)
Quarter: 2024Q4

REPORT INFORMATION
  Report Type: Spontaneous
  Country: US (occurrence: US)
  Receive Date: 20241003
  Receipt Date: 20241003
  Transmission Date: 20250115
  Serious: No
  Sender: JOHNSON AND JOHNSON
  Company Number: US-JNJFOC-20240979554

PATIENT

DRUGS (2)
  1. SPRAVATO [Suspect]
     Active Substance: ESKETAMINE
     Indication: Product used for unknown indication
  2. KETAMINE [Concomitant]
     Active Substance: KETAMINE
     Route: 030

REACTIONS (2)
  - Drug delivery system malfunction [Unknown]
  - Therapeutic response decreased [Unknown]
